FAERS Safety Report 14579250 (Version 1)
Quarter: 2018Q1

REPORT INFORMATION
  Report Type: Spontaneous
  Country: US (occurrence: US)
  Receive Date: 20180227
  Receipt Date: 20180227
  Transmission Date: 20180509
  Serious: Yes (Other)
  Sender: FDA-Public Use
  Company Number: US-OTSUKA-KJ20050757

PATIENT

DRUGS (2)
  1. ABILIFY [Suspect]
     Active Substance: ARIPIPRAZOLE
     Indication: SCHIZOPHRENIA
     Route: 065
     Dates: start: 20031007
  2. ABILIFY [Suspect]
     Active Substance: ARIPIPRAZOLE
     Indication: SCHIZOPHRENIA
     Route: 065

REACTIONS (9)
  - Palpitations [Unknown]
  - Anaemia [Unknown]
  - Dysphonia [Unknown]
  - Sinus congestion [Unknown]
  - Fatigue [Unknown]
  - Macrocytosis [Unknown]
  - Psychotic disorder [Unknown]
  - Platelet aggregation decreased [Unknown]
  - Epistaxis [Unknown]

NARRATIVE: CASE EVENT DATE: 20040309
